FAERS Safety Report 6284535-5 (Version None)
Quarter: 2009Q3

REPORT INFORMATION
  Report Type: 
  Country: None (occurrence: None)
  Receive Date: 20090727
  Receipt Date: 20090615
  Transmission Date: 20100115
  Serious: No
  Sender: FDA-Public Use
  Company Number: US-ALEXION-A200900488

PATIENT
  Sex: Female

DRUGS (5)
  1. SOLIRIS [Suspect]
     Indication: PAROXYSMAL NOCTURNAL HAEMOGLOBINURIA
     Dosage: 600 MG, QW
     Route: 042
     Dates: start: 20071102, end: 20071123
  2. SOLIRIS [Suspect]
     Dosage: 900 MG, Q2W
     Route: 042
     Dates: start: 20071130, end: 20090220
  3. PREDNISONE [Concomitant]
     Dosage: 7.5 MG, QD
     Route: 048
  4. CALCIUM [Concomitant]
     Dosage: 600 MG, QD
     Route: 048
  5. LOVENOX [Concomitant]
     Dosage: 40 MG, UNK

REACTIONS (4)
  - COUGH [None]
  - HAEMOGLOBIN DECREASED [None]
  - HAEMOGLOBINURIA [None]
  - NASOPHARYNGITIS [None]
